FAERS Safety Report 24949115 (Version 1)
Quarter: 2025Q1

REPORT INFORMATION
  Report Type: Spontaneous
  Country: US (occurrence: US)
  Receive Date: 20250210
  Receipt Date: 20250210
  Transmission Date: 20250409
  Serious: No
  Sender: ALKEM
  Company Number: US-ALKEM LABORATORIES LIMITED-US-ALKEM-2024-20772

PATIENT
  Sex: Male
  Weight: 68.027 kg

DRUGS (1)
  1. FINASTERIDE [Suspect]
     Active Substance: FINASTERIDE
     Indication: Alopecia
     Dosage: 1 MILLIGRAM, BID
     Route: 048

REACTIONS (7)
  - Myalgia [Recovered/Resolved]
  - Nausea [Recovered/Resolved]
  - Genital pain [Recovered/Resolved]
  - Libido decreased [Recovered/Resolved]
  - Asthenia [Recovered/Resolved]
  - Mood altered [Recovered/Resolved]
  - Pain [Recovered/Resolved]
